FAERS Safety Report 5005798-X (Version None)
Quarter: 2006Q2

REPORT INFORMATION
  Report Type: 
  Country: None (occurrence: None)
  Receive Date: 20060515
  Receipt Date: 20060428
  Transmission Date: 20061013
  Serious: Yes (Hospitalization)
  Sender: FDA-Public Use
  Company Number: 224786

PATIENT
  Age: 40 Year
  Sex: Female
  Weight: 72.1 kg

DRUGS (5)
  1. HERCEPTIN [Suspect]
     Indication: BREAST CANCER
     Dosage: 440 MG, Q3W
     Dates: start: 20050811, end: 20051221
  2. DARVOCET-N 100 (ACETAMINOPHEN, PROPOXYPHENE NAPSYLATE) [Concomitant]
  3. ACTONEL [Concomitant]
  4. CALCIUM (CALCIUM NOS) [Concomitant]
  5. VITAMIN D (CHOLECALCIFEROL) [Concomitant]

REACTIONS (5)
  - BREAST CELLULITIS [None]
  - BREAST INFECTION [None]
  - POST PROCEDURAL COMPLICATION [None]
  - SEROMA [None]
  - STAPHYLOCOCCAL INFECTION [None]
